FAERS Safety Report 22187005 (Version 1)
Quarter: 2023Q2

REPORT INFORMATION
  Report Type: Spontaneous
  Country: US (occurrence: None)
  Receive Date: 20230407
  Receipt Date: 20230407
  Transmission Date: 20230721
  Serious: Yes (Other)
  Sender: FDA-Public Use
  Company Number: US-ROCHE-3326629

PATIENT
  Sex: Female

DRUGS (2)
  1. OCREVUS [Suspect]
     Active Substance: OCRELIZUMAB
     Indication: Product used for unknown indication
     Dosage: STRENGTH 300/ 10ML
     Route: 042
  2. MODAFINIL [Concomitant]
     Active Substance: MODAFINIL
     Dosage: 100 MG 1 TABLET

REACTIONS (1)
  - Multiple sclerosis relapse [Unknown]
